FAERS Safety Report 24831360 (Version 1)
Quarter: 2025Q1

REPORT INFORMATION
  Report Type: Spontaneous
  Country: US (occurrence: None)
  Receive Date: 20250110
  Receipt Date: 20250110
  Transmission Date: 20250409
  Serious: No
  Sender: FDA-CTU
  Company Number: None

PATIENT

DRUGS (1)
  1. INLYTA [Suspect]
     Active Substance: AXITINIB

REACTIONS (9)
  - Oxygen saturation decreased [None]
  - Decreased appetite [None]
  - Constipation [None]
  - Faecaloma [None]
  - Bronchospasm [None]
  - Muscle spasms [None]
  - Atrioventricular block [None]
  - Lung neoplasm malignant [None]
  - Renal cell carcinoma [None]
